FAERS Safety Report 7485733-5 (Version None)
Quarter: 2011Q2

REPORT INFORMATION
  Report Type: 
  Country: None (occurrence: None)
  Receive Date: 20110517
  Receipt Date: 20110511
  Transmission Date: 20111010
  Serious: Yes (Hospitalization)
  Sender: FDA-Public Use
  Company Number: SE-MERCK-1105SWE00039

PATIENT
  Age: 75 Year
  Sex: Female

DRUGS (4)
  1. ASPIRIN [Concomitant]
     Route: 065
  2. ZOCOR [Suspect]
     Indication: OEDEMA
     Route: 048
     Dates: end: 20101125
  3. ZOCOR [Suspect]
     Indication: CARDIAC FAILURE
     Route: 048
     Dates: end: 20101125
  4. ENALAPRIL MALEATE [Concomitant]
     Route: 065

REACTIONS (1)
  - CHEST PAIN [None]
